FAERS Safety Report 9645678 (Version 2)
Quarter: 2013Q4

REPORT INFORMATION
  Report Type: Spontaneous
  Country: TR (occurrence: TR)
  Receive Date: 20131025
  Receipt Date: 20131111
  Transmission Date: 20140711
  Serious: Yes (Hospitalization, Other)
  Sender: FDA-Public Use
  Company Number: TR-TEVA-438790ISR

PATIENT
  Age: 46 Year
  Sex: Female

DRUGS (11)
  1. ARIPIPRAZOLE [Suspect]
     Indication: BIPOLAR DISORDER
     Dosage: 10 MILLIGRAM DAILY;
     Route: 065
  2. PAROXETINE [Suspect]
     Indication: BIPOLAR DISORDER
     Dosage: 20 MILLIGRAM DAILY;
     Route: 065
  3. LITHIUM [Suspect]
     Indication: BIPOLAR DISORDER
     Dosage: 1800 MILLIGRAM DAILY; 1800 MG/DAY; THEN REDUCED TO 900 MG/DAY
     Route: 065
  4. LITHIUM [Suspect]
     Indication: BIPOLAR DISORDER
     Dosage: 900 MILLIGRAM DAILY;
     Route: 065
  5. QUETIAPINE [Suspect]
     Indication: BIPOLAR DISORDER
     Dosage: 900 MILLIGRAM DAILY;
     Route: 065
  6. RISPERIDONE [Suspect]
     Indication: BIPOLAR DISORDER
     Dosage: 25MG
     Route: 065
  7. VALPROIC ACID [Suspect]
     Indication: CONVULSION
     Dosage: 80 MILLIGRAM DAILY; UNKNOWN DOSE; THEN 800 MG/DAY MAINTENANCE
     Route: 065
  8. PHENYTOIN [Suspect]
     Indication: CONVULSION
     Route: 050
  9. MIDAZOLAM [Suspect]
     Indication: CONVULSION
     Route: 050
  10. LEVETIRACETAM [Suspect]
     Indication: CONVULSION
     Dosage: 200 MILLIGRAM DAILY;
     Route: 065
  11. DIAZEPAM [Suspect]
     Indication: CONVULSION
     Route: 050

REACTIONS (14)
  - Toxicity to various agents [Recovering/Resolving]
  - Neurotoxicity [Recovering/Resolving]
  - Renal failure [Unknown]
  - Urinary tract infection [Unknown]
  - Extrapyramidal disorder [Unknown]
  - Respiratory failure [Unknown]
  - Pneumonia [Unknown]
  - Hypotension [Unknown]
  - Iron deficiency anaemia [Unknown]
  - Ataxia [Unknown]
  - Mutism [Unknown]
  - Partial seizures [Unknown]
  - Myoclonus [Unknown]
  - Quadriparesis [Unknown]
